FAERS Safety Report 6279701-9 (Version None)
Quarter: 2009Q3

REPORT INFORMATION
  Report Type: 
  Country: None (occurrence: None)
  Receive Date: 20090721
  Receipt Date: 20090710
  Transmission Date: 20100115
  Serious: Yes (Hospitalization)
  Sender: FDA-Public Use
  Company Number: 2009AL003929

PATIENT
  Sex: Male

DRUGS (7)
  1. DIAZEPAM [Suspect]
  2. VENLAFAXINE HYDROCHLORIDE TABLETS, 100MG (ATLLC) [Suspect]
  3. CHLORPROMAZINE HYDROCHLORIDE CONCENTRATE [Suspect]
  4. OLANZAPINE [Concomitant]
  5. CLOZARIL [Concomitant]
  6. ....................... [Concomitant]
  7. ALCOHOL [Concomitant]

REACTIONS (8)
  - ALCOHOL USE [None]
  - FAMILY STRESS [None]
  - INTENTIONAL OVERDOSE [None]
  - MENTAL STATUS CHANGES [None]
  - PARANOIA [None]
  - SUICIDAL IDEATION [None]
  - THINKING ABNORMAL [None]
  - TREATMENT NONCOMPLIANCE [None]
